FAERS Safety Report 24616131 (Version 3)
Quarter: 2025Q1

REPORT INFORMATION
  Report Type: Report from Study
  Country: US (occurrence: US)
  Receive Date: 20241113
  Receipt Date: 20250205
  Transmission Date: 20250409
  Serious: Yes (Hospitalization)
  Sender: BIOGEN
  Company Number: US-BIOGEN-2024BI01290146

PATIENT
  Sex: Male
  Weight: 79.473 kg

DRUGS (4)
  1. SKYCLARYS [Suspect]
     Active Substance: OMAVELOXOLONE
     Indication: Friedreich^s ataxia
     Route: 050
     Dates: start: 20231228
  2. SKYCLARYS [Suspect]
     Active Substance: OMAVELOXOLONE
     Route: 050
  3. SKYCLARYS [Suspect]
     Active Substance: OMAVELOXOLONE
     Route: 050
     Dates: start: 20231228
  4. SKYCLARYS [Suspect]
     Active Substance: OMAVELOXOLONE
     Dosage: TAKE TWO PILLS PER DAY
     Route: 050

REACTIONS (2)
  - Urinary tract infection [Recovered/Resolved]
  - Chest pain [Unknown]
